FAERS Safety Report 23026268 (Version 1)
Quarter: 2023Q4

REPORT INFORMATION
  Report Type: Spontaneous
  Country: FR (occurrence: FR)
  Receive Date: 20231004
  Receipt Date: 20231004
  Transmission Date: 20240109
  Serious: Yes (Other)
  Sender: FDA-Public Use
  Company Number: FR-VALIDUS PHARMACEUTICALS LLC-FR-VDP-2023-016686

PATIENT

DRUGS (6)
  1. CEFOTAXIME SODIUM [Suspect]
     Active Substance: CEFOTAXIME SODIUM
     Indication: Product used for unknown indication
     Dosage: 6 G, QD
     Route: 042
     Dates: start: 20230719, end: 20230726
  2. PIPERACILLIN SODIUM\TAZOBACTAM SODIUM [Suspect]
     Active Substance: PIPERACILLIN SODIUM\TAZOBACTAM SODIUM
     Indication: Product used for unknown indication
     Dosage: 12 G, QD
     Route: 048
     Dates: start: 20230726, end: 20230728
  3. POSACONAZOLE [Suspect]
     Active Substance: POSACONAZOLE
     Indication: Prophylaxis
     Dosage: 300 MG, QD
     Route: 048
     Dates: start: 20230725, end: 20230801
  4. CYTARABINE [Suspect]
     Active Substance: CYTARABINE
     Indication: Acute leukaemia
     Dosage: 12 G, QD
     Route: 042
     Dates: start: 20230724, end: 20230728
  5. OMEPRAZOLE [Suspect]
     Active Substance: OMEPRAZOLE
     Indication: Prophylaxis
     Dosage: 20 MG, QD
     Route: 042
     Dates: start: 20230718, end: 20230730
  6. SPRYCEL [Suspect]
     Active Substance: DASATINIB
     Indication: Acute leukaemia
     Dosage: 140 MG, QD
     Route: 048
     Dates: start: 20230725, end: 20230730

REACTIONS (1)
  - Rash pustular [Not Recovered/Not Resolved]

NARRATIVE: CASE EVENT DATE: 20230727
